FAERS Safety Report 17765775 (Version 1)
Quarter: 2020Q2

REPORT INFORMATION
  Report Type: Spontaneous
  Country: US (occurrence: US)
  Receive Date: 20200510
  Receipt Date: 20200510
  Transmission Date: 20200714
  Serious: No
  Sender: FDA-Public Use
  Company Number: None

PATIENT
  Age: 64 Year
  Sex: Female
  Weight: 55.35 kg

DRUGS (3)
  1. BUDENONIDE 05MG/2ML [Suspect]
     Active Substance: BUDESONIDE
     Indication: SINUSITIS
     Dosage: ?          QUANTITY:1 AMPULE;?
     Route: 055
     Dates: start: 20200427
  2. VITAMIN C [Concomitant]
     Active Substance: ASCORBIC ACID
  3. MULTIVITMINS [Concomitant]

REACTIONS (3)
  - Burning sensation [None]
  - Product substitution issue [None]
  - Pain [None]

NARRATIVE: CASE EVENT DATE: 20200510
